FAERS Safety Report 5379017-9 (Version None)
Quarter: 2007Q3

REPORT INFORMATION
  Report Type: 
  Country: None (occurrence: None)
  Receive Date: 20070705
  Receipt Date: 20070627
  Transmission Date: 20080115
  Serious: Yes (Other)
  Sender: FDA-Public Use
  Company Number: JP-BRISTOL-MYERS SQUIBB COMPANY-13833850

PATIENT
  Age: 8 Year
  Sex: Male

DRUGS (5)
  1. CYCLOPHOSPHAMIDE [Suspect]
     Indication: RETINOBLASTOMA
  2. VINCRISTINE SULFATE [Suspect]
     Indication: RETINOBLASTOMA
  3. ETOPOSIDE [Suspect]
     Indication: RETINOBLASTOMA
  4. CARBOPLATIN [Suspect]
     Indication: RETINOBLASTOMA
  5. PIRARUBICIN HCL [Suspect]
     Indication: RETINOBLASTOMA

REACTIONS (1)
  - EWING'S SARCOMA [None]
